FAERS Safety Report 9089876 (Version 1)
Quarter: 2013Q1

REPORT INFORMATION
  Report Type: Report from Study
  Country: US (occurrence: US)
  Receive Date: 20130131
  Receipt Date: 20130131
  Transmission Date: 20140127
  Serious: No
  Sender: FDA-Public Use
  Company Number: US-ABBOTT-12P-163-1014817-00

PATIENT
  Sex: Male

DRUGS (3)
  1. HUMIRA [Suspect]
     Indication: PSORIASIS
     Route: 058
     Dates: start: 201203, end: 201210
  2. HUMIRA [Suspect]
     Route: 058
     Dates: start: 201211
  3. LEXAPRO [Concomitant]
     Indication: DEPRESSION

REACTIONS (3)
  - Toothache [Recovered/Resolved]
  - Tooth abscess [Recovered/Resolved]
  - Pharyngitis [Recovered/Resolved]
